FAERS Safety Report 9854149 (Version 2)
Quarter: 2014Q1

REPORT INFORMATION
  Report Type: Spontaneous
  Country: BR (occurrence: JP)
  Receive Date: 20140130
  Receipt Date: 20140214
  Transmission Date: 20141002
  Serious: Yes (Life-Threatening)
  Sender: FDA-Public Use
  Company Number: BR-KOWA-2014S1000060

PATIENT
  Age: 69 Year
  Sex: Male

DRUGS (11)
  1. LIVALO [Suspect]
     Route: 048
  2. SONIAS [Suspect]
     Indication: TYPE 2 DIABETES MELLITUS
     Route: 048
     Dates: start: 20111129
  3. BLOPRESS [Concomitant]
     Route: 048
  4. JANUVIA [Concomitant]
     Route: 048
  5. HARNAL [Concomitant]
     Route: 048
  6. LENDORMIN [Concomitant]
     Route: 048
  7. YODEL [Concomitant]
     Route: 048
  8. NEW LECICARBON [Concomitant]
  9. CELESTAMINE [Concomitant]
  10. PLAVIX [Concomitant]
     Route: 048
  11. WARFARIN [Concomitant]

REACTIONS (1)
  - Prostate cancer [Recovering/Resolving]
